FAERS Safety Report 7458049-0 (Version None)
Quarter: 2011Q2

REPORT INFORMATION
  Report Type: 
  Country: None (occurrence: None)
  Receive Date: 20110504
  Receipt Date: 20110428
  Transmission Date: 20111010
  Serious: Yes (Other)
  Sender: FDA-Public Use
  Company Number: BR-PFIZER INC-2011091887

PATIENT
  Age: 38 Year
  Sex: Female
  Weight: 72 kg

DRUGS (1)
  1. PRISTIQ [Suspect]
     Indication: DEPRESSION
     Dosage: UNSPECIFIED DOSAGE, 1X/DAY
     Route: 048
     Dates: start: 20110201

REACTIONS (2)
  - BIPOLAR DISORDER [None]
  - WEIGHT INCREASED [None]
